FAERS Safety Report 4660503-1 (Version None)
Quarter: 2005Q2

REPORT INFORMATION
  Report Type: 
  Country: None (occurrence: None)
  Receive Date: 20050511
  Receipt Date: 20050511
  Transmission Date: 20051028
  Serious: Yes (Hospitalization)
  Sender: FDA-Public Use
  Company Number: None

PATIENT
  Sex: Female
  Weight: 65 kg

DRUGS (2)
  1. PROPOFOL [Suspect]
     Indication: ANAESTHESIA
     Dosage: IV (1800 MG TOTAL)
     Route: 042
     Dates: start: 20050501, end: 20050506
  2. PROPOFOL [Suspect]
     Indication: SEDATION
     Dosage: IV (1800 MG TOTAL)
     Route: 042
     Dates: start: 20050501, end: 20050506

REACTIONS (5)
  - APNOEA [None]
  - DYSPHAGIA [None]
  - LARYNGOSPASM [None]
  - LOSS OF CONSCIOUSNESS [None]
  - POST PROCEDURAL COMPLICATION [None]
